FAERS Safety Report 23704448 (Version 1)
Quarter: 2024Q2

REPORT INFORMATION
  Report Type: Spontaneous
  Country: US (occurrence: US)
  Receive Date: 20240404
  Receipt Date: 20240404
  Transmission Date: 20240715
  Serious: No
  Sender: FDA-Public Use
  Company Number: US-SA-SAC20240329000346

PATIENT
  Sex: Female
  Weight: 73.469 kg

DRUGS (4)
  1. DUPIXENT [Suspect]
     Active Substance: DUPILUMAB
     Indication: Chronic rhinosinusitis with nasal polyps
     Dosage: 300 MG, QOW
     Route: 058
     Dates: start: 202011
  2. ESTRADIOL [Concomitant]
     Active Substance: ESTRADIOL
  3. MELATONIN [Concomitant]
     Active Substance: MELATONIN
  4. VITAMINS NOS [Concomitant]
     Active Substance: VITAMINS
     Dosage: UNK, QD

REACTIONS (1)
  - Illness [Unknown]
